FAERS Safety Report 5119711-8 (Version None)
Quarter: 2006Q4

REPORT INFORMATION
  Report Type: 
  Country: None (occurrence: None)
  Receive Date: 20061003
  Receipt Date: 20060922
  Transmission Date: 20070319
  Serious: Yes (Life-Threatening, Other)
  Sender: FDA-Public Use
  Company Number: US-JNJFOC-20060904587

PATIENT
  Sex: Male

DRUGS (7)
  1. REMICADE [Suspect]
     Indication: COLITIS
     Dosage: SINGLE INFUSION
     Route: 042
  2. IMURAN [Suspect]
  3. IMURAN [Suspect]
     Indication: COLITIS
  4. LOVENOX [Suspect]
     Indication: DRUG USE FOR UNKNOWN INDICATION
  5. ASACOL [Concomitant]
     Indication: COLITIS
  6. LOW MOLECULAR WEIGHT HEPARIN [Concomitant]
     Indication: INFERIOR VENA CAVAL OCCLUSION
  7. LOW MOLECULAR WEIGHT HEPARIN [Concomitant]
     Indication: ANTIPHOSPHOLIPID SYNDROME

REACTIONS (6)
  - ANTIPHOSPHOLIPID SYNDROME [None]
  - CEREBRAL VENTRICLE DILATATION [None]
  - HYDROCEPHALUS [None]
  - NUCLEAR MAGNETIC RESONANCE IMAGING BRAIN ABNORMAL [None]
  - PULMONARY EMBOLISM [None]
  - T-CELL LYMPHOMA [None]
